FAERS Safety Report 5490696-8 (Version None)
Quarter: 2007Q4

REPORT INFORMATION
  Report Type: 
  Country: None (occurrence: None)
  Receive Date: 20071019
  Receipt Date: 20071018
  Transmission Date: 20080405
  Serious: Yes (Other)
  Sender: FDA-Public Use
  Company Number: A0688461A

PATIENT
  Age: 48 Year
  Sex: Female

DRUGS (2)
  1. ALLI [Suspect]
     Route: 048
     Dates: end: 20070825
  2. NITROGLYCERIN [Suspect]
     Indication: CHEST PAIN
     Route: 060

REACTIONS (7)
  - CHEST PAIN [None]
  - CHOLELITHIASIS [None]
  - GALLBLADDER PAIN [None]
  - HEADACHE [None]
  - NAUSEA [None]
  - SUFFOCATION FEELING [None]
  - WEIGHT INCREASED [None]
